FAERS Safety Report 14961414 (Version 2)
Quarter: 2018Q3

REPORT INFORMATION
  Report Type: Other
  Country: FR (occurrence: FR)
  Receive Date: 20180601
  Receipt Date: 20180710
  Transmission Date: 20181010
  Serious: Yes (Hospitalization, Other)
  Sender: FDA-Public Use
  Company Number: FR-MACLEODS PHARMACEUTICALS US LTD-MAC2018013916

PATIENT

DRUGS (6)
  1. ZEFFIX [Concomitant]
     Active Substance: LAMIVUDINE
     Indication: CHRONIC HEPATITIS B
     Dosage: 1 DOSAGE FORM, QD
     Route: 048
     Dates: start: 2000
  2. FLAGYL [Suspect]
     Active Substance: METRONIDAZOLE\METRONIDAZOLE HYDROCHLORIDE
     Indication: GASTRIC ULCER HELICOBACTER
     Dosage: 500 MILLIGRAM, QD
     Route: 048
     Dates: start: 20171011, end: 20171017
  3. CLARITHROMYCIN 500 MG TABLET [Suspect]
     Active Substance: CLARITHROMYCIN
     Indication: GASTRIC ULCER HELICOBACTER
     Dosage: 500 MILLIGRAM, QD, FILM?COATED TABLET
     Route: 048
     Dates: start: 20171011, end: 20171024
  4. HEPSERA [Concomitant]
     Active Substance: ADEFOVIR DIPIVOXIL
     Indication: CHRONIC HEPATITIS B
     Dosage: 1 DOSAGE FORM, BID
     Route: 048
     Dates: start: 2002
  5. AMOXICILLIN. [Suspect]
     Active Substance: AMOXICILLIN
     Indication: GASTRIC ULCER HELICOBACTER
     Dosage: 2 DOSAGE FORM, QD
     Route: 048
     Dates: start: 20171011, end: 20171024
  6. PANTOPRAZOLE TABLET [Suspect]
     Active Substance: PANTOPRAZOLE
     Indication: GASTRIC ULCER HELICOBACTER
     Dosage: 1 DOSAGE FORM, QD, GASTRO?RESISTANT TABLET
     Route: 048
     Dates: start: 20171011

REACTIONS (5)
  - Seizure [Recovered/Resolved]
  - Amnesia [Recovered/Resolved]
  - Syncope [Recovered/Resolved]
  - Epilepsy [Recovered/Resolved]
  - Insomnia [Unknown]

NARRATIVE: CASE EVENT DATE: 20171017
